FAERS Safety Report 13989751 (Version 3)
Quarter: 2017Q4

REPORT INFORMATION
  Report Type: Spontaneous
  Country: JP (occurrence: JP)
  Receive Date: 20170920
  Receipt Date: 20171024
  Transmission Date: 20180321
  Serious: Yes (Hospitalization)
  Sender: FDA-Public Use
  Company Number: JP-ORION CORPORATION ORION PHARMA-ENTC2017-0435

PATIENT
  Age: 64 Year
  Sex: Male

DRUGS (3)
  1. FP [Concomitant]
     Active Substance: SELEGILINE HYDROCHLORIDE
     Route: 065
     Dates: end: 20170913
  2. STALEVO [Suspect]
     Active Substance: CARBIDOPA\ENTACAPONE\LEVODOPA
     Indication: PARKINSON^S DISEASE
     Route: 050
  3. BI-SIFROL [Concomitant]
     Active Substance: PRAMIPEXOLE
     Route: 065

REACTIONS (3)
  - Wrong technique in product usage process [Unknown]
  - Metabolic acidosis [Recovering/Resolving]
  - Leukoencephalopathy [Not Recovered/Not Resolved]

NARRATIVE: CASE EVENT DATE: 20170905
